FAERS Safety Report 7915511-1 (Version None)
Quarter: 2011Q4

REPORT INFORMATION
  Report Type: 
  Country: None (occurrence: None)
  Receive Date: 20111115
  Receipt Date: 20111111
  Transmission Date: 20120403
  Serious: Yes (Other)
  Sender: FDA-Public Use
  Company Number: US-JNJFOC-20111105357

PATIENT
  Sex: Female

DRUGS (8)
  1. EVISTA [Concomitant]
  2. LISINOPRIL [Concomitant]
  3. LASIX [Concomitant]
  4. ZOSYN [Concomitant]
     Indication: PNEUMONIA
  5. XARELTO [Suspect]
     Indication: KNEE ARTHROPLASTY
     Route: 048
  6. ANCEF [Concomitant]
  7. ADVAIR DISKUS 100/50 [Concomitant]
  8. OMEPRAZOLE [Concomitant]

REACTIONS (1)
  - PULMONARY EMBOLISM [None]
